FAERS Safety Report 9616848 (Version 2)
Quarter: 2013Q4

REPORT INFORMATION
  Report Type: Spontaneous
  Country: US (occurrence: US)
  Receive Date: 20131011
  Receipt Date: 20131108
  Transmission Date: 20140711
  Serious: Yes (Death, Other)
  Sender: FDA-Public Use
  Company Number: US-GILEAD-2013-0085283

PATIENT
  Sex: Female

DRUGS (4)
  1. LETAIRIS [Suspect]
     Indication: PULMONARY ARTERIAL HYPERTENSION
     Dosage: 10 MG, QD
     Route: 048
     Dates: start: 201203
  2. VENTAVIS [Concomitant]
  3. REVATIO [Concomitant]
  4. COUMADIN                           /00014802/ [Concomitant]

REACTIONS (1)
  - Pulmonary arterial hypertension [Fatal]
